FAERS Safety Report 12961080 (Version 1)
Quarter: 2016Q4

REPORT INFORMATION
  Report Type: Report from Study
  Country: None (occurrence: US)
  Receive Date: 20161121
  Receipt Date: 20161121
  Transmission Date: 20170207
  Serious: Yes (Hospitalization)
  Sender: FDA-Public Use
  Company Number: US-ABBVIE-16K-163-1718195-00

PATIENT
  Age: 18 Year
  Sex: Male
  Weight: 90.8 kg

DRUGS (6)
  1. REMICADE [Concomitant]
     Active Substance: INFLIXIMAB
     Dates: start: 20160909
  2. REMICADE [Concomitant]
     Active Substance: INFLIXIMAB
     Indication: CROHN^S DISEASE
  3. ALBUTEROL. [Concomitant]
     Active Substance: ALBUTEROL
     Indication: ASTHMA
  4. METHOTREXATE. [Concomitant]
     Active Substance: METHOTREXATE
     Indication: PRODUCT USED FOR UNKNOWN INDICATION
  5. DULERA [Concomitant]
     Active Substance: FORMOTEROL FUMARATE DIHYDRATE\MOMETASONE FUROATE
     Indication: ASTHMA
  6. HUMIRA [Suspect]
     Active Substance: ADALIMUMAB
     Indication: CROHN^S DISEASE
     Route: 058
     Dates: start: 20160602, end: 20160901

REACTIONS (6)
  - Fistula discharge [Recovering/Resolving]
  - Abdominal distension [Recovered/Resolved]
  - Crohn^s disease [Recovered/Resolved]
  - Gastrointestinal ulcer [Recovering/Resolving]
  - White blood cell count increased [Recovered/Resolved]
  - Anal fistula [Recovering/Resolving]

NARRATIVE: CASE EVENT DATE: 20160726
